FAERS Safety Report 12155125 (Version 9)
Quarter: 2018Q1

REPORT INFORMATION
  Report Type: Report from Study
  Country: CA (occurrence: CA)
  Receive Date: 20160307
  Receipt Date: 20180319
  Transmission Date: 20180508
  Serious: Yes (Death, Hospitalization)
  Sender: FDA-Public Use
  Company Number: CA-JNJFOC-20160212158

PATIENT
  Age: 84 Year
  Sex: Male
  Weight: 73.48 kg

DRUGS (18)
  1. SENOKOT [Concomitant]
     Active Substance: SENNOSIDES
     Route: 048
  2. CALCIUM CARBONATE. [Concomitant]
     Active Substance: CALCIUM CARBONATE
     Route: 048
  3. OSTEOFORTE [Concomitant]
     Route: 048
  4. PROLIA [Concomitant]
     Active Substance: DENOSUMAB
     Indication: PROSTATE CANCER
     Route: 065
  5. PREDNISONE. [Concomitant]
     Active Substance: PREDNISONE
     Indication: PROSTATE CANCER METASTATIC
     Route: 048
     Dates: end: 20151217
  6. PROLIA [Concomitant]
     Active Substance: DENOSUMAB
     Indication: OSTEOPOROSIS
     Route: 065
  7. ZOCOR [Concomitant]
     Active Substance: SIMVASTATIN
     Route: 048
  8. ZYTIGA [Suspect]
     Active Substance: ABIRATERONE ACETATE
     Indication: PROSTATE CANCER METASTATIC
     Route: 048
     Dates: start: 20141016, end: 20151217
  9. PREDNISONE. [Concomitant]
     Active Substance: PREDNISONE
     Indication: PROSTATE CANCER METASTATIC
     Route: 048
  10. ZYTIGA [Suspect]
     Active Substance: ABIRATERONE ACETATE
     Indication: PROSTATE CANCER METASTATIC
     Route: 048
  11. VITAMIN D [Concomitant]
     Active Substance: CHOLECALCIFEROL
     Route: 048
  12. PRADAXA [Concomitant]
     Active Substance: DABIGATRAN ETEXILATE MESYLATE
     Route: 048
  13. LEVOTHYROXINE. [Concomitant]
     Active Substance: LEVOTHYROXINE
     Route: 048
  14. ZYTIGA [Suspect]
     Active Substance: ABIRATERONE ACETATE
     Indication: PROSTATE CANCER METASTATIC
     Route: 048
     Dates: end: 201604
  15. THYROXINE [Concomitant]
     Active Substance: LEVOTHYROXINE
     Route: 065
  16. SIMVASTATIN. [Concomitant]
     Active Substance: SIMVASTATIN
     Dosage: AT NIGHT
     Route: 048
  17. LUPRON [Concomitant]
     Active Substance: LEUPROLIDE ACETATE
     Indication: PROSTATE CANCER
     Route: 065
  18. TYLENOL [Concomitant]
     Active Substance: ACETAMINOPHEN
     Dosage: MAXIMUM 4 GM PER DAY
     Route: 048

REACTIONS (19)
  - Abscess neck [Not Recovered/Not Resolved]
  - Fall [Recovered/Resolved]
  - Muscular weakness [Not Recovered/Not Resolved]
  - Wrong technique in product usage process [Not Recovered/Not Resolved]
  - Peripheral swelling [Not Recovered/Not Resolved]
  - Pneumonia [Fatal]
  - Hospitalisation [Not Recovered/Not Resolved]
  - Tooth abscess [Not Recovered/Not Resolved]
  - Drug administration error [Not Recovered/Not Resolved]
  - Pollakiuria [Not Recovered/Not Resolved]
  - Syncope [Recovered/Resolved]
  - Electrolyte imbalance [Recovered/Resolved]
  - Head injury [Unknown]
  - Prostatic specific antigen abnormal [Recovered/Resolved]
  - Protein total decreased [Not Recovered/Not Resolved]
  - Decreased appetite [Recovered/Resolved]
  - Hypotension [Not Recovered/Not Resolved]
  - Asthenia [Not Recovered/Not Resolved]
  - Blood potassium decreased [Not Recovered/Not Resolved]

NARRATIVE: CASE EVENT DATE: 20151201
